FAERS Safety Report 10697728 (Version 11)
Quarter: 2015Q3

REPORT INFORMATION
  Report Type: Report from Study
  Country: AU (occurrence: AU)
  Receive Date: 20150108
  Receipt Date: 20150811
  Transmission Date: 20151125
  Serious: Yes (Hospitalization)
  Sender: FDA-Public Use
  Company Number: AU-009507513-1501AUS001271

PATIENT
  Age: 52 Year
  Sex: Female
  Weight: 77.4 kg

DRUGS (9)
  1. PEMBROLIZUMAB. [Suspect]
     Active Substance: PEMBROLIZUMAB
     Indication: MALIGNANT MELANOMA
     Dosage: 10 MG/KG, Q2W
     Route: 042
     Dates: start: 20140214, end: 20141120
  2. PEMBROLIZUMAB. [Suspect]
     Active Substance: PEMBROLIZUMAB
     Dosage: 10 MG/KG, Q2W
     Route: 042
     Dates: start: 20141205, end: 20141205
  3. PEMBROLIZUMAB. [Suspect]
     Active Substance: PEMBROLIZUMAB
     Dosage: 10 MG/KG, Q2W
     Route: 042
     Dates: start: 20150220
  4. COLOXYL WITH SENNA [Concomitant]
     Active Substance: DOCUSATE\SENNOSIDES
     Indication: CONSTIPATION PROPHYLAXIS
     Dosage: TOTAL DAILY DOSE: 2 TABLETS, PRN
     Route: 048
     Dates: start: 201402
  5. PANTOPRAZOLE [Concomitant]
     Active Substance: PANTOPRAZOLE SODIUM
     Indication: GASTROOESOPHAGEAL REFLUX DISEASE
     Dosage: 40 MG, ONCE A DAY
     Route: 048
     Dates: start: 201402
  6. OSMOLAX (POLYETHYLENE GLYCOL 3350) [Concomitant]
     Indication: CONSTIPATION PROPHYLAXIS
     Dosage: 2 PACKET, BID
     Route: 048
     Dates: start: 20140207
  7. LORATADINE. [Concomitant]
     Active Substance: LORATADINE
     Indication: PRURITUS
     Dosage: TOTAL DAILY DOSE: 10 MG, PRN
     Route: 048
     Dates: start: 20140606
  8. IBUPROFEN. [Concomitant]
     Active Substance: IBUPROFEN
     Indication: CANCER PAIN
     Dosage: TOTAL DAILY DOSE: 400 MG, PRN
     Route: 048
     Dates: start: 20140408
  9. FERROGRAD C (FERROUS SULFATE (+) SODIUM ASCORBATE) [Concomitant]
     Indication: IRON DEFICIENCY ANAEMIA
     Dosage: 1 TABLET, ONCE A DAY
     Route: 048
     Dates: start: 201401

REACTIONS (1)
  - Face oedema [Not Recovered/Not Resolved]

NARRATIVE: CASE EVENT DATE: 20141226
